FAERS Safety Report 21196535 (Version 3)
Quarter: 2022Q4

REPORT INFORMATION
  Report Type: Report from Study
  Country: KR (occurrence: KR)
  Receive Date: 20220810
  Receipt Date: 20221014
  Transmission Date: 20230112
  Serious: Yes (Hospitalization)
  Sender: FDA-Public Use
  Company Number: KR-NOVARTISPH-NVSC2022KR175308

PATIENT
  Age: 45 Year
  Sex: Female
  Weight: 51.8 kg

DRUGS (7)
  1. ALPELISIB [Suspect]
     Active Substance: ALPELISIB
     Indication: Ovarian cancer
     Dosage: 200_MG MILLIGRAM(S)_DAILY
     Route: 048
     Dates: start: 20211222
  2. OLAPARIB [Suspect]
     Active Substance: OLAPARIB
     Indication: Ovarian cancer
     Dosage: 400 MG, BID
     Route: 048
     Dates: start: 20211222
  3. CETIRIZINE [Concomitant]
     Active Substance: CETIRIZINE HYDROCHLORIDE
     Indication: Prophylaxis
     Dosage: UNK
     Route: 065
     Dates: start: 20211222, end: 20220802
  4. GLICLAZIDE [Concomitant]
     Active Substance: GLICLAZIDE
     Indication: Hyperglycaemia
     Dosage: UNK
     Route: 065
     Dates: start: 20220126
  5. LOBEGLITAZONE SULFATE [Concomitant]
     Active Substance: LOBEGLITAZONE SULFATE
     Indication: Hyperglycaemia
     Dosage: UNK
     Route: 065
     Dates: start: 20220615, end: 20220802
  6. PREGABALIN [Concomitant]
     Active Substance: PREGABALIN
     Indication: Prophylaxis
     Dosage: UNK
     Route: 065
     Dates: start: 20220615
  7. EDOXABAN [Concomitant]
     Active Substance: EDOXABAN
     Indication: Deep vein thrombosis
     Dosage: UNK
     Route: 065
     Dates: start: 20220809

REACTIONS (1)
  - Pulmonary embolism [Recovered/Resolved]

NARRATIVE: CASE EVENT DATE: 20220802
